FAERS Safety Report 9736511 (Version 1)
Quarter: 2013Q4

REPORT INFORMATION
  Report Type: Spontaneous
  Country: GB (occurrence: GB)
  Receive Date: 20131206
  Receipt Date: 20131206
  Transmission Date: 20140711
  Serious: Yes (Hospitalization)
  Sender: FDA-Public Use
  Company Number: GB-TEVA-448683ISR

PATIENT
  Age: 92 Year
  Sex: Male

DRUGS (11)
  1. ISOSORBIDE MONONITRATE [Suspect]
     Dates: end: 20130116
  2. METFORMIN [Suspect]
     Indication: TYPE 2 DIABETES MELLITUS
  3. NICORANDIL [Suspect]
     Dates: end: 20130116
  4. PLACEBO [Suspect]
     Indication: TYPE 2 DIABETES MELLITUS
     Route: 048
     Dates: start: 20100726, end: 20121229
  5. ASPIRIN [Concomitant]
     Dates: end: 20121229
  6. GLYCERYL TRINITRATE [Concomitant]
  7. CITALOPRAM [Concomitant]
     Dates: start: 20110428
  8. HYDROXOCOBALAMIN [Concomitant]
     Dates: start: 20120725
  9. FOLIC ACID [Concomitant]
     Dates: start: 20120813
  10. ANGEZE/MONOMAX SR [Concomitant]
     Dates: start: 20120725
  11. DIPROBASE [Concomitant]
     Dosage: CREAM
     Dates: start: 20101203

REACTIONS (1)
  - Subdural haematoma [Recovering/Resolving]
